FAERS Safety Report 18751841 (Version 4)
Quarter: 2022Q1

REPORT INFORMATION
  Report Type: Other
  Country: US (occurrence: None)
  Receive Date: 20210118
  Receipt Date: 20220106
  Transmission Date: 20220423
  Serious: Yes (Hospitalization)
  Sender: FDA-Public Use
  Company Number: US-ROCHE-2750645

PATIENT
  Age: 68 Year
  Sex: Male
  Weight: 102.9 kg

DRUGS (14)
  1. ALECENSA [Suspect]
     Active Substance: ALECTINIB HYDROCHLORIDE
     Indication: Lung neoplasm malignant
     Dosage: TAKE 4 CAPSULES (600MG) BY MOUTH TWICE A DAY, ADMINISTER WITH FOOD
     Route: 048
     Dates: start: 20171220
  2. ALECENSA [Suspect]
     Active Substance: ALECTINIB HYDROCHLORIDE
     Indication: Non-small cell lung cancer metastatic
     Dosage: TAKE 4 CAPSULES BY MOUTH TWICE A DAY
     Route: 048
  3. ALECENSA [Suspect]
     Active Substance: ALECTINIB HYDROCHLORIDE
     Indication: Lung adenocarcinoma
     Dosage: (4) 125MG CAPSULE,
     Route: 048
     Dates: start: 20211220
  4. ALECENSA [Suspect]
     Active Substance: ALECTINIB HYDROCHLORIDE
     Dosage: TAKE 4 CAPSULES (600MG) BY MOUTH TWICE A DAY, ADMINISTER WITH FOOD
     Route: 048
     Dates: start: 20211221
  5. AVASTIN [Suspect]
     Active Substance: BEVACIZUMAB
     Indication: Product used for unknown indication
     Dosage: NO
     Route: 065
  6. SENOSIDE [Concomitant]
     Indication: Constipation
     Dosage: STARTED EARLY TO MID -2018
     Route: 048
     Dates: start: 2018
  7. TRELEGY ELLIPTA [Concomitant]
     Active Substance: FLUTICASONE FUROATE\UMECLIDINIUM BROMIDE\VILANTEROL TRIFENATATE
     Dosage: 100 MCG FLUTICASONE FUROATE, 62.5 MCG UMECLIDINIUM, 25 MCG VILANTEROL; STARTED ABOUT 3 YEARS AGO
     Route: 055
  8. MONTELUKAST [Concomitant]
     Active Substance: MONTELUKAST SODIUM
     Indication: Hypersensitivity
     Route: 048
     Dates: start: 2019
  9. GUAIFENESIN [Concomitant]
     Active Substance: GUAIFENESIN
     Indication: Pneumonia
     Dosage: 600-30 MG DOSE; HAS BEEN ON AND OFF THIS SINCE BEFORE ALECENSA
     Route: 048
     Dates: start: 2021
  10. DEXTROMETHORPHAN [Concomitant]
     Active Substance: DEXTROMETHORPHAN
     Indication: Pneumonia
     Dosage: 600-30 MG DOSE; HAS BEEN ON AND OFF THIS SINCE BEFORE ALECENSA
     Route: 048
     Dates: start: 2021
  11. MAGNESIUM [Concomitant]
     Active Substance: MAGNESIUM
     Indication: Arthralgia
     Dosage: STARTED BEFORE ALECENSA
     Route: 048
  12. FOLIC ACID [Concomitant]
     Active Substance: FOLIC ACID
     Route: 048
     Dates: start: 201401
  13. IPRATROPIUM BROMIDE [Concomitant]
     Active Substance: IPRATROPIUM BROMIDE
     Indication: Pneumonia
     Dosage: 0.5 MG - 3 MG DOSE
     Route: 055
     Dates: start: 2019
  14. ALBUTEROL [Concomitant]
     Active Substance: ALBUTEROL
     Indication: Hypersensitivity
     Dosage: (2) 90 MCG PUFFS AS NEEDED
     Route: 055
     Dates: start: 2000

REACTIONS (2)
  - COVID-19 [Recovering/Resolving]
  - Drug hypersensitivity [Unknown]

NARRATIVE: CASE EVENT DATE: 20201231
